FAERS Safety Report 26218458 (Version 1)
Quarter: 2025Q4

REPORT INFORMATION
  Report Type: Report from Study
  Country: US (occurrence: US)
  Receive Date: 20251231
  Receipt Date: 20251231
  Transmission Date: 20260117
  Serious: No
  Sender: SOLENO THERAPEUTICS
  Company Number: US-SOLENO THERAPEUTICS, INC.-SOL2025000949

PATIENT
  Sex: Male

DRUGS (1)
  1. DIAZOXIDE CHOLINE [Suspect]
     Active Substance: DIAZOXIDE CHOLINE
     Indication: Prader-Willi syndrome
     Dosage: UNK
     Route: 048
     Dates: start: 2025

REACTIONS (3)
  - Swelling face [Recovered/Resolved]
  - Oedema peripheral [Recovered/Resolved]
  - Hair growth abnormal [Recovered/Resolved]

NARRATIVE: CASE EVENT DATE: 20250101
